FAERS Safety Report 17750433 (Version 1)
Quarter: 2020Q2

REPORT INFORMATION
  Report Type: Spontaneous
  Country: IN (occurrence: IN)
  Receive Date: 20200506
  Receipt Date: 20200506
  Transmission Date: 20200714
  Serious: Yes (Other)
  Sender: FDA-Public Use
  Company Number: IN-SUN PHARMACEUTICAL INDUSTRIES LTD-2020R1-245840

PATIENT
  Age: 24 Year
  Sex: Female

DRUGS (1)
  1. RISPERIDONE. [Suspect]
     Active Substance: RISPERIDONE
     Indication: SCHIZOPHRENIA
     Dosage: 5 MILLIGRAM, DAILY
     Route: 065

REACTIONS (3)
  - Condition aggravated [Unknown]
  - Therapeutic product effect incomplete [Unknown]
  - Depressive symptom [Unknown]
